APPROVED DRUG PRODUCT: ACYCLOVIR
Active Ingredient: ACYCLOVIR
Strength: 200MG/5ML
Dosage Form/Route: SUSPENSION;ORAL
Application: A213951 | Product #001
Applicant: VISTAPHARM LLC
Approved: Jan 11, 2021 | RLD: No | RS: No | Type: DISCN